FAERS Safety Report 13142940 (Version 1)
Quarter: 2017Q1

REPORT INFORMATION
  Report Type: Spontaneous
  Country: US (occurrence: US)
  Receive Date: 20170123
  Receipt Date: 20170123
  Transmission Date: 20170428
  Serious: No
  Sender: FDA-Public Use
  Company Number: None

PATIENT
  Age: 51 Year

DRUGS (2)
  1. VIEKIRA PAK [Suspect]
     Active Substance: DASABUVIR\OMBITASVIR\PARITAPREVIR\RITONAVIR
     Indication: HEPATITIS C
     Dosage: 2PINK/1BEIGE IN AM AND ONE BEIGE IN PM
     Route: 048
     Dates: start: 20161118
  2. RIBAVRIN [Suspect]
     Active Substance: RIBAVIRIN
     Indication: HEPATITIS C
     Route: 048
     Dates: start: 20161118

REACTIONS (3)
  - Intervertebral disc protrusion [None]
  - Pain [None]
  - Drug dose omission [None]

NARRATIVE: CASE EVENT DATE: 20161210
